FAERS Safety Report 9571600 (Version 1)
Quarter: 2013Q3

REPORT INFORMATION
  Report Type: Spontaneous
  Country: US (occurrence: None)
  Receive Date: 20130930
  Receipt Date: 20130930
  Transmission Date: 20140515
  Serious: Yes (Life-Threatening, Hospitalization)
  Sender: FDA-Public Use
  Company Number: None

PATIENT
  Age: 24 Year
  Sex: Female
  Weight: 91.3 kg

DRUGS (1)
  1. NORGESTREL/ETHINYL/ESTRADIOL [Suspect]
     Indication: CONTRACEPTION
     Dosage: 0.3MG/30MCG TAB.
     Dates: start: 20130809, end: 20130923

REACTIONS (1)
  - Pulmonary embolism [None]
